FAERS Safety Report 11466130 (Version 1)
Quarter: 2015Q3

REPORT INFORMATION
  Report Type: Spontaneous
  Country: CH (occurrence: CH)
  Receive Date: 20150907
  Receipt Date: 20150907
  Transmission Date: 20151125
  Serious: Yes (Death, Hospitalization, Other)
  Sender: FDA-Public Use
  Company Number: CH-BAYER-2015-408731

PATIENT
  Age: 90 Year
  Sex: Female
  Weight: 58 kg

DRUGS (10)
  1. ALLOPURINOL. [Concomitant]
     Active Substance: ALLOPURINOL
     Dosage: 150 MG, QD
     Route: 048
  2. METRONIDAZOLE. [Concomitant]
     Active Substance: METRONIDAZOLE
     Indication: CLOSTRIDIUM COLITIS
     Dosage: UNK
     Route: 048
     Dates: start: 20150405, end: 20150417
  3. DISTRANEURIN [Concomitant]
     Active Substance: CLOMETHIAZOLE
     Dosage: UNK
     Route: 048
  4. CEFEPIME [Suspect]
     Active Substance: CEFEPIME HYDROCHLORIDE
     Indication: UROSEPSIS
     Dosage: 1500 MG, BID
     Route: 040
     Dates: start: 20150327, end: 20150330
  5. CIPROXIN [Suspect]
     Active Substance: CIPROFLOXACIN
     Indication: ENTEROBACTER SEPSIS
     Dosage: 500 MG, BID
     Route: 048
     Dates: start: 20150330, end: 20150406
  6. DIGOXIN SANDOZ [Suspect]
     Active Substance: DIGOXIN
     Dosage: 0.125 MG, 5IW
     Route: 048
     Dates: end: 20150531
  7. METRONIDAZOLE. [Concomitant]
     Active Substance: METRONIDAZOLE
     Indication: CLOSTRIDIUM COLITIS
     Dosage: UNK
     Route: 048
     Dates: start: 20150531, end: 20150614
  8. XARELTO [Concomitant]
     Active Substance: RIVAROXABAN
     Dosage: UNK
     Route: 048
     Dates: end: 20150605
  9. BELOC [Concomitant]
     Active Substance: METOPROLOL TARTRATE
     Dosage: 75 MG, QD
     Route: 048
  10. COLCHICINE. [Concomitant]
     Active Substance: COLCHICINE
     Dosage: 0.5 MG, QD
     Route: 048
     Dates: end: 20150531

REACTIONS (8)
  - Clostridium difficile colitis [Recovered/Resolved]
  - Cardioactive drug level increased [Fatal]
  - Acute kidney injury [Unknown]
  - Hypokalaemia [Fatal]
  - Cardiac failure acute [Fatal]
  - Hypernatraemia [Fatal]
  - Depressed level of consciousness [Unknown]
  - Clostridium difficile infection [Recovered/Resolved]

NARRATIVE: CASE EVENT DATE: 20150404
